FAERS Safety Report 13401507 (Version 3)
Quarter: 2017Q2

REPORT INFORMATION
  Report Type: Spontaneous
  Country: TR (occurrence: TR)
  Receive Date: 20170404
  Receipt Date: 20170607
  Transmission Date: 20170830
  Serious: Yes (Other)
  Sender: FDA-Public Use
  Company Number: TR-PFIZER INC-2017138628

PATIENT
  Age: 34 Year
  Sex: Female
  Weight: 71 kg

DRUGS (5)
  1. BENVIDA [Suspect]
     Active Substance: LACOSAMIDE
     Indication: EPILEPSY
     Dosage: 200 MG, 2X/DAY
     Route: 048
     Dates: start: 2015
  2. BENVIDA [Suspect]
     Active Substance: LACOSAMIDE
     Dosage: 150 MG, 2X/DAY
     Route: 048
  3. LAMICTAL [Suspect]
     Active Substance: LAMOTRIGINE
     Dosage: 150 MG, 2X/DAY
     Route: 048
  4. EFFEXOR XR [Suspect]
     Active Substance: VENLAFAXINE HYDROCHLORIDE
     Indication: ANXIETY DISORDER
     Dosage: 75 MG, 1X/DAY
     Route: 048
     Dates: start: 20160608, end: 20170110
  5. LAMICTAL [Suspect]
     Active Substance: LAMOTRIGINE
     Indication: EPILEPSY
     Dosage: 100 MG, 2X/DAY
     Route: 048
     Dates: start: 2007

REACTIONS (2)
  - Stillbirth [Unknown]
  - Back pain [Unknown]

NARRATIVE: CASE EVENT DATE: 20170306
